FAERS Safety Report 7638723-3 (Version None)
Quarter: 2011Q3

REPORT INFORMATION
  Report Type: 
  Country: None (occurrence: None)
  Receive Date: 20110727
  Receipt Date: 20110721
  Transmission Date: 20111222
  Serious: Yes (Life-Threatening, Hospitalization)
  Sender: FDA-Public Use
  Company Number: NL-ELI_LILLY_AND_COMPANY-NL201009007394

PATIENT
  Sex: Female

DRUGS (8)
  1. ADALIMUMAB [Concomitant]
     Indication: RHEUMATOID ARTHRITIS
  2. RAMIPRIL [Concomitant]
     Indication: HYPERTENSION
  3. ASPIRIN [Concomitant]
     Indication: CARDIOVASCULAR DISORDER
     Dosage: UNK, UNK
  4. LEVOTHYROXINE SODIUM [Concomitant]
     Indication: SECONDARY HYPOTHYROIDISM
  5. METHOTREXATE [Concomitant]
     Indication: RHEUMATOID ARTHRITIS
  6. ALENDRONATE SODIUM [Concomitant]
     Indication: OSTEOPOROSIS
     Dosage: UNK, UNK
  7. SOMATROPIN RDNA [Suspect]
     Indication: GROWTH HORMONE DEFICIENCY
     Dosage: 0.3 MG, UNK
     Route: 058
     Dates: start: 19920101
  8. NIFEDIPINE [Concomitant]
     Indication: HYPERTENSION

REACTIONS (2)
  - ADRENOCORTICAL INSUFFICIENCY ACUTE [None]
  - PNEUMONIA [None]
